FAERS Safety Report 4625094-X (Version None)
Quarter: 2005Q1

REPORT INFORMATION
  Report Type: 
  Country: None (occurrence: None)
  Receive Date: 20050325
  Receipt Date: 20050124
  Transmission Date: 20050727
  Serious: No
  Sender: FDA-Public Use
  Company Number: USA050188611

PATIENT
  Age: 52 Year
  Sex: Female

DRUGS (2)
  1. FORTEO [Suspect]
     Indication: OSTEOPOROSIS
     Dosage: 20 UG IN THE MORNING
     Dates: start: 20041201, end: 20050121
  2. CALCIUM GLUCONATE [Concomitant]

REACTIONS (4)
  - ARTHRALGIA [None]
  - NEURITIS [None]
  - SINUSITIS [None]
  - SOMNOLENCE [None]
